FAERS Safety Report 8496195 (Version 3)
Quarter: 2012Q4

REPORT INFORMATION
  Report Type: 
  Country: US (occurrence: US)
  Receive Date: 20120405
  Receipt Date: 20121011
  Transmission Date: 20130627
  Serious: Yes (Death, Life-Threatening, Hospitalization, Other)
  Sender: FDA-Public Use
  Company Number: US-GLAXOSMITHKLINE-A0972380A

PATIENT
  Age: 44 Year
  Sex: Female
  Weight: 70.5 kg

DRUGS (2)
  1. FLOLAN [Suspect]
     Indication: PULMONARY ARTERIAL HYPERTENSION
     Dosage: 34NGKM Unknown
     Route: 042
     Dates: start: 20011030
  2. REVATIO [Concomitant]
     Dosage: 20MG Three times per day
     Route: 048
     Dates: start: 201112

REACTIONS (2)
  - Death [Fatal]
  - Pneumonia [Recovered/Resolved]
